FAERS Safety Report 7607420-2 (Version None)
Quarter: 2011Q3

REPORT INFORMATION
  Report Type: 
  Country: None (occurrence: None)
  Receive Date: 20110713
  Receipt Date: 20110708
  Transmission Date: 20111222
  Serious: Yes (Hospitalization)
  Sender: FDA-Public Use
  Company Number: US-BRISTOL-MYERS SQUIBB COMPANY-15826126

PATIENT
  Age: 75 Year
  Sex: Male
  Weight: 85 kg

DRUGS (2)
  1. IPILIMUMAB [Suspect]
     Indication: MALIGNANT MELANOMA
     Dosage: IPILI 10MG/KG OVER 90MIN ON DAY1Q12WKS LAST DOSE ON 15APR2011 NO OF COURSE: 2(TOTAL)
     Route: 042
     Dates: start: 20110325
  2. GM-CSF [Suspect]
     Indication: MALIGNANT MELANOMA
     Dosage: GMCSF 250MG/D SQ ON DAYS (1-4+5+)(INDUCT+MAINT THERAPY) CYCLE 21D LAST ADMINSTD ON 24APR2011
     Route: 058
     Dates: start: 20110325

REACTIONS (5)
  - ATRIAL FIBRILLATION [None]
  - DIARRHOEA [None]
  - DEHYDRATION [None]
  - OEDEMA PERIPHERAL [None]
  - STOMATITIS [None]
